FAERS Safety Report 5537436-1 (Version None)
Quarter: 2007Q4

REPORT INFORMATION
  Report Type: 
  Country: None (occurrence: None)
  Receive Date: 20071207
  Receipt Date: 20071129
  Transmission Date: 20080405
  Serious: Yes (Other)
  Sender: FDA-Public Use
  Company Number: US-GILEAD-2007-0014485

PATIENT
  Sex: Female
  Weight: 89.438 kg

DRUGS (8)
  1. LETAIRIS [Suspect]
     Indication: PULMONARY HYPERTENSION
     Route: 048
     Dates: start: 20070829
  2. FLOLAN [Concomitant]
     Indication: PULMONARY HYPERTENSION
     Route: 042
  3. NORVASC [Concomitant]
     Indication: HYPERTENSION
     Route: 048
  4. COUMADIN [Concomitant]
     Indication: ANTICOAGULANT THERAPY
     Route: 048
  5. FISH OIL [Concomitant]
     Indication: MEDICAL DIET
     Route: 048
  6. VITAMIN CAP [Concomitant]
     Indication: VITAMIN SUPPLEMENTATION
     Route: 048
  7. LOW-OGESTREL-21 [Concomitant]
     Indication: MEDICAL DIET
     Dosage: 0.3-30
     Route: 048
  8. VITAMIN E [Concomitant]
     Indication: MEDICAL DIET
     Route: 048

REACTIONS (1)
  - PROTHROMBIN TIME ABNORMAL [None]
